FAERS Safety Report 5259729-8 (Version None)
Quarter: 2007Q1

REPORT INFORMATION
  Report Type: 
  Country: None (occurrence: None)
  Receive Date: 20070309
  Receipt Date: 20070216
  Transmission Date: 20070707
  Serious: Yes (Other)
  Sender: FDA-Public Use
  Company Number: PHBS2007JP03252

PATIENT
  Age: 2 Month
  Sex: Female

DRUGS (1)
  1. ZADITEN [Suspect]
     Indication: DERMATITIS ATOPIC
     Dosage: 2 ML, UNK
     Route: 048
     Dates: start: 20070206, end: 20070214

REACTIONS (2)
  - GASTRIC HAEMORRHAGE [None]
  - OCCULT BLOOD [None]
